FAERS Safety Report 10896337 (Version 1)
Quarter: 2015Q1

REPORT INFORMATION
  Report Type: Spontaneous
  Country: CA (occurrence: CA)
  Receive Date: 20150309
  Receipt Date: 20150309
  Transmission Date: 20150721
  Serious: Yes (Life-Threatening, Other)
  Sender: FDA-Public Use
  Company Number: CA-ROCHE-1546403

PATIENT
  Sex: Female

DRUGS (21)
  1. AVAPRO [Concomitant]
     Active Substance: IRBESARTAN
     Dosage: QAM
     Route: 048
  2. COUMADIN [Concomitant]
     Active Substance: WARFARIN SODIUM
     Dosage: MWS; 1 MG TABS
     Route: 065
  3. LYRICA [Concomitant]
     Active Substance: PREGABALIN
     Route: 048
  4. AVAPRO [Concomitant]
     Active Substance: IRBESARTAN
     Dosage: QPM
     Route: 048
  5. ACTONEL [Concomitant]
     Active Substance: RISEDRONATE SODIUM
     Route: 048
  6. PREDNISONE. [Concomitant]
     Active Substance: PREDNISONE
     Dosage: FOR 7 DAYS
     Route: 048
  7. PREDNISONE. [Concomitant]
     Active Substance: PREDNISONE
     Dosage: FOR 7 DAYS
     Route: 048
  8. XELJANZ [Suspect]
     Active Substance: TOFACITINIB CITRATE
     Indication: PRODUCT USED FOR UNKNOWN INDICATION
     Route: 065
  9. ORENCIA [Concomitant]
     Active Substance: ABATACEPT
     Dosage: WEEKLY
     Route: 058
  10. PREDNISONE. [Concomitant]
     Active Substance: PREDNISONE
     Dosage: FOR 7 DAYS THEN STOPPED
     Route: 048
  11. RITUXIMAB [Suspect]
     Active Substance: RITUXIMAB
     Indication: PRODUCT USED FOR UNKNOWN INDICATION
     Dosage: X 2 DOSES
     Route: 065
     Dates: start: 201305
  12. SULFASALAZINE. [Suspect]
     Active Substance: SULFASALAZINE
     Indication: PRODUCT USED FOR UNKNOWN INDICATION
     Route: 065
     Dates: start: 201211, end: 201301
  13. NORVASC [Concomitant]
     Active Substance: AMLODIPINE BESYLATE
     Route: 065
  14. VENTOLIN HFA [Concomitant]
     Active Substance: ALBUTEROL SULFATE
     Route: 065
  15. ADVAIR HFA [Concomitant]
     Active Substance: FLUTICASONE PROPIONATE\SALMETEROL XINAFOATE
     Dosage: 2 PUFFS
     Route: 065
  16. PREDNISONE. [Concomitant]
     Active Substance: PREDNISONE
     Dosage: FOR 7 DAYS
     Route: 048
  17. IMIPRAMINE HCL [Concomitant]
     Active Substance: IMIPRAMINE HYDROCHLORIDE
     Dosage: AT NIGHT
     Route: 048
  18. ACTEMRA [Suspect]
     Active Substance: TOCILIZUMAB
     Indication: PRODUCT USED FOR UNKNOWN INDICATION
     Route: 065
     Dates: start: 201111, end: 201209
  19. COUMADIN [Concomitant]
     Active Substance: WARFARIN SODIUM
     Dosage: TTFSUN; 1 MG TABS
     Route: 065
  20. LOSEC [Concomitant]
     Active Substance: OMEPRAZOLE
     Route: 048
  21. PREDNISONE. [Concomitant]
     Active Substance: PREDNISONE
     Dosage: FOR 7 DAYS
     Route: 048

REACTIONS (21)
  - Cardiac arrest [Unknown]
  - Musculoskeletal stiffness [Unknown]
  - Colonic abscess [Unknown]
  - Hypertension [Unknown]
  - Dyslipidaemia [Unknown]
  - Arthralgia [Unknown]
  - Cardiac murmur [Unknown]
  - Hypersensitivity [Unknown]
  - Hypoaesthesia [Unknown]
  - Renal artery stenosis [Unknown]
  - Microangiopathy [Unknown]
  - Joint swelling [Unknown]
  - Aneurysm [Unknown]
  - Deep vein thrombosis [Unknown]
  - Chronic kidney disease [Unknown]
  - Back pain [Unknown]
  - Pruritus [Unknown]
  - Weight increased [Unknown]
  - Dyspnoea [Unknown]
  - Headache [Unknown]
  - Drug ineffective [Unknown]
